FAERS Safety Report 9145450 (Version 1)
Quarter: 2013Q1

REPORT INFORMATION
  Report Type: Spontaneous
  Country: US (occurrence: None)
  Receive Date: 20130226
  Receipt Date: 20130226
  Transmission Date: 20140127
  Serious: Yes (Other)
  Sender: FDA-Public Use
  Company Number: None

PATIENT
  Sex: Male

DRUGS (6)
  1. TEMODAR [Suspect]
     Indication: BRAIN NEOPLASM MALIGNANT
     Dosage: 360 MG DAILY PO
     Route: 048
     Dates: start: 20120907, end: 20130220
  2. TEMODAR [Suspect]
     Indication: MALIGNANT NEOPLASM OF SPINAL CORD
     Dosage: 360 MG DAILY PO
     Route: 048
     Dates: start: 20120907, end: 20130220
  3. KEPPRA [Concomitant]
  4. AMBIENT CR [Concomitant]
  5. FLOMAX [Concomitant]
  6. COZAAR [Concomitant]

REACTIONS (1)
  - Disease progression [None]
